FAERS Safety Report 14447549 (Version 1)
Quarter: 2018Q1

REPORT INFORMATION
  Report Type: Spontaneous
  Country: US (occurrence: US)
  Receive Date: 20180126
  Receipt Date: 20180126
  Transmission Date: 20180509
  Serious: No
  Sender: FDA-Public Use
  Company Number: US-ABBVIE-17K-163-2106509-00

PATIENT
  Age: 19 Year
  Sex: Male

DRUGS (1)
  1. HUMIRA [Suspect]
     Active Substance: ADALIMUMAB
     Indication: PSORIASIS
     Route: 058

REACTIONS (12)
  - Laceration [Not Recovered/Not Resolved]
  - Haemorrhage [Not Recovered/Not Resolved]
  - Insomnia [Unknown]
  - Pruritus [Not Recovered/Not Resolved]
  - Malaise [Not Recovered/Not Resolved]
  - Drug effect incomplete [Not Recovered/Not Resolved]
  - Feeling abnormal [Not Recovered/Not Resolved]
  - Fatigue [Not Recovered/Not Resolved]
  - Feeling of despair [Not Recovered/Not Resolved]
  - Dizziness [Unknown]
  - Psoriasis [Not Recovered/Not Resolved]
  - Nausea [Unknown]
